FAERS Safety Report 6621834-9 (Version None)
Quarter: 2010Q1

REPORT INFORMATION
  Report Type: 
  Country: None (occurrence: None)
  Receive Date: 20100223
  Receipt Date: 20091209
  Transmission Date: 20100710
  Serious: No
  Sender: FDA-Public Use
  Company Number: 002896

PATIENT
  Sex: Male
  Weight: 57.2 kg

DRUGS (3)
  1. CIMZIA [Suspect]
     Indication: CROHN'S DISEASE
     Dosage: (SUBCUTANEOUS)
     Route: 058
     Dates: start: 20090216
  2. ASACOL [Concomitant]
  3. PRENATAL VITAMINS /01549301/ [Concomitant]

REACTIONS (1)
  - ECZEMA [None]
